FAERS Safety Report 4567370-5 (Version None)
Quarter: 2005Q1

REPORT INFORMATION
  Report Type: 
  Country: None (occurrence: None)
  Receive Date: 20050127
  Receipt Date: 20050111
  Transmission Date: 20050727
  Serious: Yes (Hospitalization)
  Sender: FDA-Public Use
  Company Number: 2004BI001539

PATIENT
  Sex: Female

DRUGS (9)
  1. AVONEX [Suspect]
     Indication: MULTIPLE SCLEROSIS
     Dosage: 30 UG; QW; IM
     Route: 030
  2. AVONEX [Suspect]
     Indication: MULTIPLE SCLEROSIS
     Dosage: 30 UG; QW; IM
     Route: 030
  3. SYNTHROID [Concomitant]
  4. SYMMETREL [Concomitant]
  5. DEPAKOTE [Concomitant]
  6. DILANTIN [Concomitant]
  7. ELAVIL [Concomitant]
  8. ARICEPT [Concomitant]
  9. ELIDEL [Concomitant]

REACTIONS (3)
  - ASTHENIA [None]
  - EYE DISORDER [None]
  - TREMOR [None]
